FAERS Safety Report 5475129-X (Version None)
Quarter: 2007Q4

REPORT INFORMATION
  Report Type: 
  Country: None (occurrence: None)
  Receive Date: 20071002
  Receipt Date: 20030922
  Transmission Date: 20080405
  Serious: Yes (Death, Other)
  Sender: FDA-Public Use
  Company Number: US-PFIZER INC-2007057739

PATIENT
  Sex: Female

DRUGS (2)
  1. ZOLOFT [Suspect]
     Dosage: DAILY DOSE:150MG
  2. REMERON [Suspect]
     Dosage: DAILY DOSE:60MG

REACTIONS (2)
  - CAESAREAN SECTION [None]
  - COMPLETED SUICIDE [None]
